FAERS Safety Report 9084957 (Version 1)
Quarter: 2013Q1

REPORT INFORMATION
  Report Type: Spontaneous
  Country: FR (occurrence: FR)
  Receive Date: 20130201
  Receipt Date: 20130201
  Transmission Date: 20140127
  Serious: Yes (Other)
  Sender: FDA-Public Use
  Company Number: FR-AMGEN-FRASP2013006389

PATIENT
  Age: 80 Year
  Sex: Male

DRUGS (8)
  1. VECTIBIX [Suspect]
     Indication: COLON CANCER METASTATIC
     Dosage: 0.0667 DF (1 DF, ONCE IN 15 DAYS)
     Route: 042
     Dates: start: 20120514
  2. DOXYCYCLINE [Concomitant]
     Dosage: 100 MG, UNK
     Route: 048
     Dates: start: 20120514
  3. LEVOTHYROX [Concomitant]
     Dosage: UNK LONG SHORT TREATMENT
     Route: 048
  4. CARDENSIEL [Concomitant]
     Dosage: 1.25 MG, UNK LONG SHORT TREATMENT
     Route: 048
  5. PREVISCAN                          /00789001/ [Concomitant]
     Dosage: UNK LONG SHORT TREATMENT
     Route: 048
  6. KALEORID [Concomitant]
     Dosage: UNK LONG SHORT TREATMENT
     Route: 048
  7. ALDACTONE                          /00006201/ [Concomitant]
     Dosage: UNK LONG SHORT TREATMENT
     Route: 048
  8. LASILIX                            /00032601/ [Concomitant]
     Dosage: UNK LONG SHORT TREATMENT
     Route: 048

REACTIONS (1)
  - Cardiac failure [Not Recovered/Not Resolved]
